FAERS Safety Report 25831638 (Version 1)
Quarter: 2025Q3

REPORT INFORMATION
  Report Type: Spontaneous
  Country: US (occurrence: None)
  Receive Date: 20250921
  Receipt Date: 20250921
  Transmission Date: 20251021
  Serious: Yes (Death)
  Sender: FDA-CTU
  Company Number: None

PATIENT
  Age: 38 Year
  Sex: Female
  Weight: 99 kg

DRUGS (5)
  1. BACLOFEN [Suspect]
     Active Substance: BACLOFEN
     Indication: Rocky mountain spotted fever
     Dates: start: 20210709, end: 20210710
  2. BACLOFEN [Suspect]
     Active Substance: BACLOFEN
     Indication: Muscle spasms
  3. GABAPENTIN [Concomitant]
     Active Substance: GABAPENTIN
  4. OXYCODONE [Concomitant]
     Active Substance: OXYCODONE
  5. CANNABIS SATIVA SUBSP. INDICA TOP [Concomitant]
     Active Substance: CANNABIS SATIVA SUBSP. INDICA TOP

REACTIONS (9)
  - Renal disorder [None]
  - Ketoacidosis [None]
  - Somnolence [None]
  - Legal problem [None]
  - Victim of abuse [None]
  - Brain death [None]
  - Contraindicated product prescribed [None]
  - Drug monitoring procedure not performed [None]
  - Contraindicated product administered [None]

NARRATIVE: CASE EVENT DATE: 20210711
